FAERS Safety Report 11823112 (Version 2)
Quarter: 2015Q4

REPORT INFORMATION
  Report Type: Report from Study
  Country: AU (occurrence: AU)
  Receive Date: 20151210
  Receipt Date: 20151211
  Transmission Date: 20160305
  Serious: Yes (Other)
  Sender: FDA-Public Use
  Company Number: AU-JNJFOC-20151206421

PATIENT
  Age: 69 Year
  Sex: Male
  Weight: 120 kg

DRUGS (1)
  1. ZYTIGA [Suspect]
     Active Substance: ABIRATERONE ACETATE
     Indication: PROSTATE CANCER METASTATIC
     Route: 048
     Dates: start: 201501

REACTIONS (5)
  - Hypertension [Unknown]
  - Weight increased [Unknown]
  - Fatigue [Unknown]
  - Amnesia [Unknown]
  - Cognitive disorder [Unknown]
